FAERS Safety Report 7437707-8 (Version None)
Quarter: 2011Q2

REPORT INFORMATION
  Report Type: 
  Country: None (occurrence: None)
  Receive Date: 20110426
  Receipt Date: 20110413
  Transmission Date: 20111010
  Serious: Yes (Hospitalization)
  Sender: FDA-Public Use
  Company Number: JP-ASTRAZENECA-2011SE23412

PATIENT
  Age: 1 Year
  Sex: Female

DRUGS (1)
  1. MEROPENEM [Suspect]
     Indication: POST PROCEDURAL INFECTION
     Route: 042
     Dates: start: 20110404, end: 20110410

REACTIONS (1)
  - HEPATIC FUNCTION ABNORMAL [None]
